FAERS Safety Report 9450054 (Version 1)
Quarter: 2013Q3

REPORT INFORMATION
  Report Type: Spontaneous
  Country: US (occurrence: US)
  Receive Date: 20130809
  Receipt Date: 20130809
  Transmission Date: 20140515
  Serious: No
  Sender: FDA-Public Use
  Company Number: US-PFIZER INC-2013229359

PATIENT
  Age: 67 Year
  Sex: Female
  Weight: 64.85 kg

DRUGS (1)
  1. LIPITOR [Suspect]
     Dosage: 1 DF, 1X/DAY
     Route: 048
     Dates: start: 2005, end: 2005

REACTIONS (1)
  - Myalgia [Recovered/Resolved]
